FAERS Safety Report 10527739 (Version 2)
Quarter: 2014Q4

REPORT INFORMATION
  Report Type: Report from Study
  Country: JP (occurrence: JP)
  Receive Date: 20141020
  Receipt Date: 20141020
  Transmission Date: 20150528
  Serious: Yes (Death, Other)
  Sender: FDA-Public Use
  Company Number: JP-SA-2014SA098408

PATIENT
  Sex: Male

DRUGS (3)
  1. PREDNISONE. [Concomitant]
     Active Substance: PREDNISONE
     Dosage: EVERY 3 OR 4 WEEKS BETWEEN 2008 AND 2012
  2. DOCETAXEL. [Suspect]
     Active Substance: DOCETAXEL
     Indication: PROSTATE CANCER
     Dosage: DOSE: 70-75 MG/M2
     Route: 065
  3. HORMONES AND RELATED AGENTS [Concomitant]

REACTIONS (1)
  - Large intestine perforation [Fatal]
